FAERS Safety Report 23863491 (Version 7)
Quarter: 2024Q2

REPORT INFORMATION
  Report Type: Spontaneous
  Country: US (occurrence: US)
  Receive Date: 20240516
  Receipt Date: 20240627
  Transmission Date: 20240715
  Serious: Yes (Death)
  Sender: FDA-Public Use
  Company Number: US-002147023-NVSC2024US103974

PATIENT

DRUGS (1)
  1. PLUVICTO [Suspect]
     Active Substance: LUTETIUM LU-177 VIPIVOTIDE TETRAXETAN
     Indication: Product used for unknown indication
     Dosage: 7410 MBQ (10,4 ML)
     Route: 065
     Dates: start: 20240411, end: 20240411

REACTIONS (3)
  - Death [Fatal]
  - General physical health deterioration [Unknown]
  - Ill-defined disorder [Unknown]
